FAERS Safety Report 4819551-0 (Version None)
Quarter: 2005Q4

REPORT INFORMATION
  Report Type: 
  Country: None (occurrence: None)
  Receive Date: 20051102
  Receipt Date: 20051102
  Transmission Date: 20060501
  Serious: Yes (Hospitalization, Other)
  Sender: FDA-Public Use
  Company Number: None

PATIENT
  Sex: Male

DRUGS (2)
  1. PHENYTOIN [Suspect]
     Indication: CEREBROVASCULAR ACCIDENT
     Dosage: 200 MG BID
     Dates: start: 20050420, end: 20050805
  2. PHENYTOIN [Suspect]
     Indication: CONVULSION
     Dosage: 200 MG BID
     Dates: start: 20050420, end: 20050805

REACTIONS (3)
  - ANTICONVULSANT TOXICITY [None]
  - COORDINATION ABNORMAL [None]
  - FALL [None]
